FAERS Safety Report 9540139 (Version 3)
Quarter: 2013Q4

REPORT INFORMATION
  Report Type: Spontaneous
  Country: US (occurrence: US)
  Receive Date: 20130920
  Receipt Date: 20131024
  Transmission Date: 20140711
  Serious: Yes (Life-Threatening, Other)
  Sender: FDA-Public Use
  Company Number: US-009507513-1309USA008103

PATIENT
  Age: 72 Year
  Sex: Male
  Weight: 88.44 kg

DRUGS (1)
  1. JANUVIA [Suspect]
     Indication: DIABETES MELLITUS
     Dosage: 100 MG, ONCE DAILY
     Route: 048
     Dates: end: 20130907

REACTIONS (1)
  - Pancreatic carcinoma stage IV [Not Recovered/Not Resolved]
